FAERS Safety Report 20601534 (Version 1)
Quarter: 2022Q1

REPORT INFORMATION
  Report Type: Spontaneous
  Country: US (occurrence: US)
  Receive Date: 20220316
  Receipt Date: 20220316
  Transmission Date: 20220424
  Serious: No
  Sender: FDA-Public Use
  Company Number: US-BAYER-2022A038424

PATIENT
  Age: 86 Year
  Sex: Female

DRUGS (3)
  1. ALEVE [Suspect]
     Active Substance: NAPROXEN SODIUM
     Indication: Atrial fibrillation
     Dosage: UNK
     Route: 048
     Dates: end: 202112
  2. ELIQUIS [Concomitant]
     Active Substance: APIXABAN
     Route: 065
  3. DIGOXIN [Concomitant]
     Active Substance: DIGOXIN
     Route: 065

REACTIONS (1)
  - Drug effective for unapproved indication [Unknown]
